FAERS Safety Report 26201203 (Version 1)
Quarter: 2025Q4

REPORT INFORMATION
  Report Type: Report from Study
  Country: CA (occurrence: CA)
  Receive Date: 20251226
  Receipt Date: 20251226
  Transmission Date: 20260117
  Serious: Yes (Other)
  Sender: CELLTRION
  Company Number: CA-CELLTRION INC.-2025CA022318

PATIENT

DRUGS (3)
  1. INFLIXIMAB-DYYB [Suspect]
     Active Substance: INFLIXIMAB-DYYB
     Indication: Crohn^s disease
     Dosage: MAINTENANCE - 600 MG, EVERY 4 WEEKS; 600 MG, EVERY 4 WEEKS
     Route: 042
     Dates: start: 20250610
  2. INFLIXIMAB-DYYB [Suspect]
     Active Substance: INFLIXIMAB-DYYB
     Dosage: MAINTENANCE - 600 MG - IV  (INTRAVENOUS) EVERY 4 WEEKS
     Route: 042
     Dates: start: 20250610
  3. INFLIXIMAB [Suspect]
     Active Substance: INFLIXIMAB
     Indication: Product used for unknown indication
     Dosage: EVERY 4 WEEKS (Q4W); UNK, EVERY 4 WEEKS
     Route: 065

REACTIONS (6)
  - Haematochezia [Unknown]
  - Headache [Unknown]
  - Influenza like illness [Recovered/Resolved]
  - Gastrointestinal tract irritation [Recovering/Resolving]
  - Inappropriate schedule of product administration [Recovering/Resolving]
  - Off label use [Recovering/Resolving]

NARRATIVE: CASE EVENT DATE: 20250610
